FAERS Safety Report 19294582 (Version 1)
Quarter: 2021Q2

REPORT INFORMATION
  Report Type: Spontaneous
  Country: US (occurrence: US)
  Receive Date: 20210524
  Receipt Date: 20210524
  Transmission Date: 20210717
  Serious: Yes (Life-Threatening, Hospitalization, Other)
  Sender: FDA-Public Use
  Company Number: US-ACCORD-225522

PATIENT
  Age: 70 Year
  Sex: Male

DRUGS (4)
  1. ATORVASTATIN/ATORVASTATIN CALCIUM [Suspect]
     Active Substance: ATORVASTATIN CALCIUM
     Indication: PRODUCT USED FOR UNKNOWN INDICATION
  2. GLIPIZIDE. [Concomitant]
     Active Substance: GLIPIZIDE
  3. ACETYLSALICYLIC ACID [Concomitant]
     Active Substance: ASPIRIN
  4. METOPROLOL. [Concomitant]
     Active Substance: METOPROLOL

REACTIONS (8)
  - Autoimmune myositis [Recovering/Resolving]
  - Cardiac failure acute [Recovering/Resolving]
  - Autoimmune myocarditis [Recovering/Resolving]
  - Transaminases increased [Recovering/Resolving]
  - Rhabdomyolysis [Recovering/Resolving]
  - Necrotising myositis [Recovering/Resolving]
  - Left ventricular end-diastolic pressure increased [Recovering/Resolving]
  - Acute kidney injury [Recovering/Resolving]
